FAERS Safety Report 5985862-9 (Version None)
Quarter: 2008Q4

REPORT INFORMATION
  Report Type: 
  Country: None (occurrence: None)
  Receive Date: 20081209
  Receipt Date: 20080401
  Transmission Date: 20090506
  Serious: No
  Sender: FDA-Public Use
  Company Number: US-AMGEN-KDL272479

PATIENT
  Sex: Female

DRUGS (2)
  1. ENBREL [Suspect]
     Indication: RHEUMATOID ARTHRITIS
     Route: 058
     Dates: start: 20071230
  2. METHOTREXATE [Concomitant]
     Route: 048
     Dates: start: 19880101

REACTIONS (6)
  - CHILLS [None]
  - CONSTIPATION [None]
  - COUGH [None]
  - DIARRHOEA [None]
  - RESPIRATORY TRACT CONGESTION [None]
  - SINUS CONGESTION [None]
